FAERS Safety Report 21933129 (Version 5)
Quarter: 2023Q1

REPORT INFORMATION
  Report Type: Spontaneous
  Country: IT (occurrence: IT)
  Receive Date: 20230131
  Receipt Date: 20230320
  Transmission Date: 20230417
  Serious: Yes (Hospitalization, Other)
  Sender: FDA-Public Use
  Company Number: IT-DSJP-DSE-2023-103215

PATIENT
  Sex: Female
  Weight: 2.2 kg

DRUGS (4)
  1. OLMESARTAN MEDOXOMIL [Suspect]
     Active Substance: OLMESARTAN MEDOXOMIL
     Indication: Essential hypertension
     Dosage: 40 MG, QD
     Route: 064
  2. OLMESARTAN MEDOXOMIL [Suspect]
     Active Substance: OLMESARTAN MEDOXOMIL
     Indication: Maternal exposure during pregnancy
  3. ASPIRIN [Concomitant]
     Active Substance: ASPIRIN
     Indication: Foetal exposure during pregnancy
     Dosage: UNK, IN THE SECOND TRIMESTER
     Route: 064
  4. NIFEDIPINE [Concomitant]
     Active Substance: NIFEDIPINE
     Indication: Foetal exposure during pregnancy
     Dosage: UNK
     Route: 064

REACTIONS (12)
  - Hypertension [Not Recovered/Not Resolved]
  - Renal tubular dysfunction [Unknown]
  - Bone density decreased [Not Recovered/Not Resolved]
  - Hypocalvaria [Not Recovered/Not Resolved]
  - Renal impairment neonatal [Unknown]
  - Blood aldosterone increased [Not Recovered/Not Resolved]
  - Renin increased [Not Recovered/Not Resolved]
  - Bone disorder [Unknown]
  - Drug ineffective [Unknown]
  - Bone density decreased [Unknown]
  - Foetal exposure during pregnancy [Not Recovered/Not Resolved]
  - Muscle contracture [Unknown]
